FAERS Safety Report 18487826 (Version 2)
Quarter: 2022Q2

REPORT INFORMATION
  Report Type: Spontaneous
  Country: US (occurrence: US)
  Receive Date: 20201111
  Receipt Date: 20220505
  Transmission Date: 20220720
  Serious: Yes (Other)
  Sender: FDA-Public Use
  Company Number: US-BIOGEN-2020BI00942647

PATIENT
  Sex: Female

DRUGS (4)
  1. TECFIDERA [Suspect]
     Active Substance: DIMETHYL FUMARATE
     Indication: Multiple sclerosis
     Dosage: MAINTENANCE DOSE
     Route: 065
     Dates: start: 20181219
  2. TECFIDERA [Suspect]
     Active Substance: DIMETHYL FUMARATE
     Dosage: MAINTENANCE DOSE
     Route: 065
  3. TECFIDERA [Suspect]
     Active Substance: DIMETHYL FUMARATE
     Dosage: MAINTENANCE DOSE
     Route: 065
  4. TECFIDERA [Suspect]
     Active Substance: DIMETHYL FUMARATE
     Indication: Multiple sclerosis
     Route: 065
     Dates: end: 20220426

REACTIONS (15)
  - Cerebrovascular accident [Recovered/Resolved]
  - Musculoskeletal disorder [Unknown]
  - Arthropathy [Unknown]
  - Back disorder [Unknown]
  - Dizziness [Unknown]
  - Product dose omission issue [Unknown]
  - Intentional product misuse [Unknown]
  - Insulin resistance [Unknown]
  - Paraesthesia [Unknown]
  - Back pain [Unknown]
  - Multiple sclerosis [Unknown]
  - Nervous system disorder [Unknown]
  - Glycosylated haemoglobin increased [Unknown]
  - Overweight [Unknown]
  - Eye disorder [Unknown]
